FAERS Safety Report 21690579 (Version 1)
Quarter: 2022Q4

REPORT INFORMATION
  Report Type: Spontaneous
  Country: US (occurrence: US)
  Receive Date: 20221206
  Receipt Date: 20221206
  Transmission Date: 20230112
  Serious: No
  Sender: FDA-Public Use
  Company Number: US-GLENMARK PHARMACEUTICALS-2022GMK073265

PATIENT

DRUGS (3)
  1. FLUOCINOLONE ACETONIDE [Suspect]
     Active Substance: FLUOCINOLONE ACETONIDE
     Indication: Eczema
     Dosage: UNK
     Route: 061
  2. FLUOCINOLONE ACETONIDE [Suspect]
     Active Substance: FLUOCINOLONE ACETONIDE
     Dosage: UNK
     Route: 065
  3. CLOBETASOL PROPIONATE [Suspect]
     Active Substance: CLOBETASOL PROPIONATE
     Indication: Eczema
     Dosage: UNK
     Route: 061

REACTIONS (3)
  - Skin papilloma [Recovering/Resolving]
  - Skin disorder [Recovering/Resolving]
  - Drug ineffective [Unknown]
